FAERS Safety Report 9494157 (Version 4)
Quarter: 2013Q4

REPORT INFORMATION
  Report Type: Spontaneous
  Country: US (occurrence: None)
  Receive Date: 20130828
  Receipt Date: 20131018
  Transmission Date: 20140711
  Serious: Yes (Other)
  Sender: FDA-Public Use
  Company Number: ACO_38073_2013

PATIENT
  Age: 44 Year
  Sex: Male
  Weight: 96.1 kg

DRUGS (7)
  1. AMPYRA (DALFAMPRIDINE) TABLET, 10MG [Suspect]
     Indication: MULTIPLE SCLEROSIS
     Route: 048
     Dates: start: 20130601, end: 2013
  2. IBUPROFEN (IBUPROFEN) [Concomitant]
  3. REBIF (INTERFERON BETA-1A) [Concomitant]
  4. NORTRIPTYLINE  (NORTRIPTYLINE) [Concomitant]
  5. PERCOCET [Concomitant]
  6. ATIVAN (LORAZEPAM) [Concomitant]
  7. LIPITOR (ATORVASTATIN CALCIUM) [Concomitant]

REACTIONS (12)
  - Intestinal obstruction [None]
  - Abdominal pain upper [None]
  - Feeling hot [None]
  - Rhinorrhoea [None]
  - Photosensitivity reaction [None]
  - Headache [None]
  - Constipation [None]
  - Memory impairment [None]
  - Hypoaesthesia [None]
  - Paraesthesia [None]
  - Speech disorder [None]
  - Drug ineffective [None]
